FAERS Safety Report 6697766-7 (Version None)
Quarter: 2010Q2

REPORT INFORMATION
  Report Type: 
  Country: None (occurrence: None)
  Receive Date: 20100423
  Receipt Date: 20100409
  Transmission Date: 20101027
  Serious: Yes (Hospitalization)
  Sender: FDA-Public Use
  Company Number: 2010020016

PATIENT
  Age: 87 Year
  Sex: Female

DRUGS (11)
  1. TORSEMIDE [Suspect]
     Indication: CARDIAC FAILURE CHRONIC
     Dosage: 5 MG (5 M, 1 IN 1D), ORAL; 2.5 MG/DAY
     Route: 048
     Dates: start: 20090115, end: 20090818
  2. TORSEMIDE [Suspect]
     Indication: CARDIAC FAILURE CHRONIC
     Dosage: 5 MG (5 M, 1 IN 1D), ORAL; 2.5 MG/DAY
     Route: 048
     Dates: start: 20090115
  3. DIGITOXIN TAB [Suspect]
     Indication: CARDIAC FAILURE CHRONIC
     Dosage: 0.07 MG (0.07 MG, 1 IN 1D),ORAL
     Route: 048
     Dates: start: 20090115, end: 20090819
  4. VOTUM (OLMESARTAN, HYDROCHLOROTHIAZIDE) [Suspect]
     Indication: HYPERTENSION
     Dosage: 20 MG OLMESARTAN + 12.5 MG HYDROCHLOROTHIAZIDE (1 DOSAGE FORMS , 2 IN 1 D), ORAL
     Route: 048
     Dates: start: 20090115, end: 20090818
  5. L-THYROXINE LEVOTHYROXINE) [Concomitant]
  6. ASPIRIN [Concomitant]
  7. BROMHEXINE (BROMHEXINE) [Concomitant]
  8. PERENTEROL (YEAST DRIED) [Concomitant]
  9. ROMYK (ROXITHROMYCIN) [Concomitant]
  10. BISOHEXAL (BISOPROLOL HEMIFUMARATE) [Concomitant]
  11. MOXOBETA (MOXONIDINE) [Concomitant]

REACTIONS (10)
  - ATRIAL FIBRILLATION [None]
  - DIARRHOEA [None]
  - DIZZINESS [None]
  - FALL [None]
  - GENERAL PHYSICAL HEALTH DETERIORATION [None]
  - NAUSEA [None]
  - RENAL FAILURE [None]
  - THERAPEUTIC AGENT TOXICITY [None]
  - URINARY TRACT INFECTION [None]
  - VOMITING [None]
